FAERS Safety Report 24257578 (Version 1)
Quarter: 2024Q3

REPORT INFORMATION
  Report Type: Spontaneous
  Country: US (occurrence: US)
  Receive Date: 20240828
  Receipt Date: 20240828
  Transmission Date: 20241016
  Serious: No
  Sender: LUPIN
  Company Number: US-LUPIN PHARMACEUTICALS INC.-2024-08036

PATIENT

DRUGS (1)
  1. ALBUTEROL SULFATE [Suspect]
     Active Substance: ALBUTEROL SULFATE
     Indication: Asthma
     Dosage: UNK, Q4H (2 PUFFS EVERY 4 HOURS)
     Dates: start: 20240723

REACTIONS (3)
  - Cough [Unknown]
  - Drug dose omission by device [Unknown]
  - Device delivery system issue [Unknown]
